FAERS Safety Report 25791291 (Version 3)
Quarter: 2025Q4

REPORT INFORMATION
  Report Type: Spontaneous
  Country: US (occurrence: US)
  Receive Date: 20250911
  Receipt Date: 20251006
  Transmission Date: 20260118
  Serious: Yes (Death)
  Sender: IPSEN BIOPHARMACEUTICALS, INC.
  Company Number: US-IPSEN Group, Research and Development-2025-22090

PATIENT
  Age: 5 Year
  Sex: Male
  Weight: 12 kg

DRUGS (18)
  1. TAZVERIK [Suspect]
     Active Substance: TAZEMETOSTAT HYDROBROMIDE
     Indication: Brain neoplasm malignant
     Route: 048
  2. TAZVERIK [Suspect]
     Active Substance: TAZEMETOSTAT HYDROBROMIDE
     Indication: Off label use
  3. Augmentin Susp [Concomitant]
  4. DEXAMETHASONE [Concomitant]
     Active Substance: DEXAMETHASONE
  5. Famotidine susp [Concomitant]
  6. FENOFIBRATE [Concomitant]
     Active Substance: FENOFIBRATE
  7. Gabapentin solution [Concomitant]
  8. Hydromorphone inj [Concomitant]
  9. LIDODERM [Concomitant]
     Active Substance: LIDOCAINE
  10. LORAZEPAM [Concomitant]
     Active Substance: LORAZEPAM
  11. Methadone solution [Concomitant]
  12. MIDAZOLAM HYDROCHLORIDE [Concomitant]
     Active Substance: MIDAZOLAM HYDROCHLORIDE
  13. NITROGLYCERIN [Concomitant]
     Active Substance: NITROGLYCERIN
     Route: 054
  14. OLANZAPINE [Concomitant]
     Active Substance: OLANZAPINE
  15. Zofran inj [Concomitant]
  16. PEG 3350 [Concomitant]
     Active Substance: POLYETHYLENE GLYCOL 3350
  17. SENNA [Concomitant]
     Active Substance: SENNOSIDES
  18. Zonisade Suspension [Concomitant]

REACTIONS (2)
  - Death [Fatal]
  - Off label use [Unknown]
